FAERS Safety Report 10026101 (Version 1)
Quarter: 2014Q1

REPORT INFORMATION
  Report Type: Spontaneous
  Country: IE (occurrence: IE)
  Receive Date: 20140320
  Receipt Date: 20140320
  Transmission Date: 20141002
  Serious: Yes (Disabling)
  Sender: FDA-Public Use
  Company Number: IE-ABBVIE-14P-229-1214948-00

PATIENT
  Sex: Male

DRUGS (5)
  1. EPILIM CHRONOSPHERE [Suspect]
     Indication: EPILEPSY
     Dates: start: 2013
  2. EPILIM CHRONOSPHERE [Suspect]
  3. PHENYTOIN [Suspect]
     Indication: PRODUCT USED FOR UNKNOWN INDICATION
  4. CARNOSINE [Concomitant]
     Indication: PRODUCT USED FOR UNKNOWN INDICATION
  5. ALL OTHER THERAPEUTIC PRODUCTS [Concomitant]
     Indication: PRODUCT USED FOR UNKNOWN INDICATION

REACTIONS (3)
  - Incorrect route of drug administration [Unknown]
  - Medication residue present [Unknown]
  - Convulsion [Unknown]
